FAERS Safety Report 6219668-2 (Version None)
Quarter: 2009Q2

REPORT INFORMATION
  Report Type: 
  Country: None (occurrence: None)
  Receive Date: 20090609
  Receipt Date: 20090602
  Transmission Date: 20091009
  Serious: No
  Sender: FDA-Public Use
  Company Number: US-B.I. PHARMACEUTICALS,INC./RIDGEFIELD-2009-BP-06793BP

PATIENT
  Sex: Female

DRUGS (3)
  1. ZANTAC 150 [Suspect]
     Indication: DYSPEPSIA
     Dosage: 150MG
     Route: 048
     Dates: start: 20090501
  2. ZEGERID [Concomitant]
     Indication: GASTROOESOPHAGEAL REFLUX DISEASE
  3. ZEGERID [Concomitant]
     Indication: DYSPEPSIA

REACTIONS (3)
  - INAPPROPRIATE SCHEDULE OF DRUG ADMINISTRATION [None]
  - NAUSEA [None]
  - TREMOR [None]
